FAERS Safety Report 7171808 (Version 2)
Quarter: 2014Q2

REPORT INFORMATION
  Report Type: Spontaneous
  Country: NO (occurrence: None)
  Receive Date: 20091027
  Receipt Date: 20140415
  Transmission Date: 20141212
  Serious: Yes (Hospitalization, Other)
  Sender: FDA-Public Use
  Company Number: AUR-APL-2009-00886

PATIENT
  Age: 16 Day
  Sex: 0

DRUGS (1)
  1. LAMOTRIGINE (LAMOTRIGINE) [Suspect]
     Indication: PRODUCT USED FOR UNKNOWN INDICATION
     Dosage: (MOTHER) EXPOSURE VIA BREAST MILK

REACTIONS (4)
  - Apnoea neonatal [None]
  - Exposure during breast feeding [None]
  - Cyanosis neonatal [None]
  - Resuscitation [None]
